FAERS Safety Report 6472457-6 (Version None)
Quarter: 2009Q4

REPORT INFORMATION
  Report Type: 
  Country: None (occurrence: None)
  Receive Date: 20091201
  Receipt Date: 20091117
  Transmission Date: 20100525
  Serious: Yes (Other)
  Sender: FDA-Public Use
  Company Number: 233225J09USA

PATIENT
  Age: 51 Year
  Sex: Female

DRUGS (3)
  1. REBIF [Suspect]
     Indication: MULTIPLE SCLEROSIS
     Dosage: 22 MCG, 3 IN 1 WEEKS, SUBCUTANEOUS
     Route: 058
     Dates: start: 20030913, end: 20050101
  2. HIGH BLOOD PRESSURE MEDICATION (ANTIHYPERTENSIVES) [Concomitant]
  3. SYNTHROID [Concomitant]

REACTIONS (2)
  - BREAST CANCER FEMALE [None]
  - HEPATIC ENZYME INCREASED [None]
